FAERS Safety Report 21734583 (Version 1)
Quarter: 2022Q4

REPORT INFORMATION
  Report Type: Spontaneous
  Country: US (occurrence: None)
  Receive Date: 20221215
  Receipt Date: 20221215
  Transmission Date: 20230112
  Serious: No
  Sender: FDA-Public Use
  Company Number: None

PATIENT
  Age: 55 Year
  Sex: Female

DRUGS (11)
  1. KESIMPTA [Suspect]
     Active Substance: OFATUMUMAB
     Indication: Multiple sclerosis
     Dosage: 20MG ONCE MONT SUBCUTANEOUSLY?
     Route: 058
     Dates: start: 202206
  2. DOCUSATE [Concomitant]
     Active Substance: DOCUSATE
  3. DRONABINOL [Concomitant]
     Active Substance: DRONABINOL
  4. FAMOTIDINE [Concomitant]
     Active Substance: FAMOTIDINE
  5. FENTANYL [Concomitant]
     Active Substance: FENTANYL
  6. NORCO [Concomitant]
     Active Substance: ACETAMINOPHEN\HYDROCODONE BITARTRATE
  7. LINZESS [Concomitant]
     Active Substance: LINACLOTIDE
  8. VITAMINS [Concomitant]
     Active Substance: VITAMINS
  9. OMEPRAZOLE [Concomitant]
     Active Substance: OMEPRAZOLE
  10. PRAMIPEXOLE [Concomitant]
     Active Substance: PRAMIPEXOLE
  11. SODIUM CHLORIDE [Concomitant]
     Active Substance: SODIUM CHLORIDE

REACTIONS (1)
  - Atypical pneumonia [None]
